FAERS Safety Report 26177532 (Version 1)
Quarter: 2025Q4

REPORT INFORMATION
  Report Type: Spontaneous
  Country: US (occurrence: US)
  Receive Date: 20251219
  Receipt Date: 20251219
  Transmission Date: 20260118
  Serious: No
  Sender: ROCHE
  Company Number: US-ROCHE-10000456706

PATIENT

DRUGS (1)
  1. XOLAIR [Suspect]
     Active Substance: OMALIZUMAB
     Indication: Urticaria chronic

REACTIONS (5)
  - Dizziness [Unknown]
  - Arthralgia [Unknown]
  - Inflammation [Unknown]
  - Urticaria [Unknown]
  - Negative thoughts [Unknown]
